FAERS Safety Report 5732800-X (Version None)
Quarter: 2008Q2

REPORT INFORMATION
  Report Type: 
  Country: None (occurrence: None)
  Receive Date: 20080507
  Receipt Date: 20080507
  Transmission Date: 20081010
  Serious: Yes (Hospitalization)
  Sender: FDA-Public Use
  Company Number: None

PATIENT
  Age: 73 Year
  Sex: Male
  Weight: 63.5036 kg

DRUGS (8)
  1. GEMCITABINE [Suspect]
     Indication: HEAD AND NECK CANCER
     Dosage: 1500 MG/M2  EVERY 14 DAYS IV
     Route: 042
     Dates: start: 20080415
  2. PEMETREXED [Suspect]
     Indication: HEAD AND NECK CANCER
     Dosage: 500 MG/M2 EVERY 14 DAYS IV
     Route: 042
     Dates: start: 20080415
  3. SENNA [Concomitant]
  4. SYTHROID [Concomitant]
  5. MIRALAX [Concomitant]
  6. ROXICET [Concomitant]
  7. MAGIC MOUTHWASH [Concomitant]
  8. DEXAMETHASONE TAB [Concomitant]

REACTIONS (3)
  - DYSPNOEA [None]
  - HEAD AND NECK CANCER [None]
  - MALIGNANT NEOPLASM PROGRESSION [None]
